FAERS Safety Report 12843679 (Version 1)
Quarter: 2016Q4

REPORT INFORMATION
  Report Type: Spontaneous
  Country: DE (occurrence: DE)
  Receive Date: 20161013
  Receipt Date: 20161013
  Transmission Date: 20170207
  Serious: Yes (Death, Other)
  Sender: FDA-Public Use
  Company Number: DE-MYLANLABS-2016M1043998

PATIENT

DRUGS (9)
  1. TICAGRELOR [Concomitant]
     Active Substance: TICAGRELOR
     Indication: INTRACRANIAL ANEURYSM
     Dosage: 180MG
     Route: 048
  2. ASPIRIN                            /00002701/ [Interacting]
     Active Substance: ASPIRIN
     Indication: INTRACRANIAL ANEURYSM
     Dosage: 500MG
     Route: 048
  3. DEXAMETHASONE. [Concomitant]
     Active Substance: DEXAMETHASONE
     Dosage: 3X4MG DAILY
     Route: 065
  4. IBUPROFEN. [Suspect]
     Active Substance: IBUPROFEN
     Indication: PRODUCT USED FOR UNKNOWN INDICATION
     Dosage: 1X400MG DAILY
     Route: 048
  5. HEPARIN [Concomitant]
     Active Substance: HEPARIN SODIUM
     Indication: ANTICOAGULANT THERAPY
     Dosage: 3000UNITS
     Route: 042
  6. EPTIFIBATIDE. [Concomitant]
     Active Substance: EPTIFIBATIDE
     Indication: PRODUCT USED FOR UNKNOWN INDICATION
     Dosage: 15.8MG
     Route: 065
  7. TICAGRELOR [Concomitant]
     Active Substance: TICAGRELOR
     Dosage: 2X90MG DAILY
     Route: 065
  8. ASPIRIN                            /00002701/ [Interacting]
     Active Substance: ASPIRIN
     Dosage: 100MG DAILY
     Route: 065
  9. DEXAMETHASONE. [Concomitant]
     Active Substance: DEXAMETHASONE
     Indication: STEROID THERAPY
     Dosage: 40MG
     Route: 042

REACTIONS (7)
  - Thrombosis [Fatal]
  - Cardio-respiratory arrest [Fatal]
  - Oedema [Fatal]
  - Drug interaction [Fatal]
  - Brain herniation [Fatal]
  - Coma [Fatal]
  - Circulatory collapse [Fatal]
